FAERS Safety Report 23192380 (Version 1)
Quarter: 2023Q4

REPORT INFORMATION
  Report Type: Spontaneous
  Country: US (occurrence: None)
  Receive Date: 20231115
  Receipt Date: 20231115
  Transmission Date: 20240110
  Serious: Yes (Hospitalization)
  Sender: FDA-Public Use
  Company Number: None

PATIENT
  Age: 78 Year
  Sex: Male
  Weight: 98.9 kg

DRUGS (1)
  1. DENOSUMAB [Suspect]
     Active Substance: DENOSUMAB
     Dates: start: 20231101

REACTIONS (3)
  - Hypocalcaemia [None]
  - Feeling jittery [None]
  - Infusion related reaction [None]

NARRATIVE: CASE EVENT DATE: 20231110
